FAERS Safety Report 11407349 (Version 5)
Quarter: 2015Q4

REPORT INFORMATION
  Report Type: Report from Study
  Country: CA (occurrence: CA)
  Receive Date: 20150821
  Receipt Date: 20151028
  Transmission Date: 20160304
  Serious: Yes (Hospitalization)
  Sender: FDA-Public Use
  Company Number: CA-ROCHE-1613594

PATIENT
  Age: 57 Year
  Sex: Female
  Weight: 67.5 kg

DRUGS (27)
  1. VINCRISTINE [Suspect]
     Active Substance: VINCRISTINE
     Indication: NON-HODGKIN^S LYMPHOMA
     Dosage: MOST RECENT DOSE WAS ADMINISTERED ON 10/JUL/2015
     Route: 065
     Dates: start: 20150410
  2. SYNTHROID [Concomitant]
     Active Substance: LEVOTHYROXINE SODIUM
     Indication: HYPOTHYROIDISM
     Route: 065
     Dates: start: 2006
  3. ACETAMINOPHEN. [Concomitant]
     Active Substance: ACETAMINOPHEN
     Indication: FEBRILE NEUTROPENIA
     Dosage: AS A PRE CHEMO PROPHYLAXIS
     Route: 065
     Dates: start: 20150409
  4. APREPITANT. [Concomitant]
     Active Substance: APREPITANT
     Indication: PROPHYLAXIS
     Route: 065
     Dates: start: 20150430
  5. CIPROFLOXACIN. [Concomitant]
     Active Substance: CIPROFLOXACIN
  6. PEGFILGRASTIM [Concomitant]
     Active Substance: PEGFILGRASTIM
     Route: 065
  7. FLAGYL [Concomitant]
     Active Substance: METRONIDAZOLE\METRONIDAZOLE HYDROCHLORIDE
     Indication: LUNG INFECTION
     Dosage: CLOSTRIDIUM DIFFICILE
     Route: 065
     Dates: start: 20150513, end: 20150527
  8. PREDNISONE. [Suspect]
     Active Substance: PREDNISONE
     Dosage: FORM:POR
     Route: 065
  9. ONDANSETRON [Concomitant]
     Active Substance: ONDANSETRON
     Indication: NAUSEA
     Dosage: AS A PRE CHEMO PROPHYLAXIS
     Route: 065
     Dates: start: 20150410
  10. MELATONIN [Concomitant]
     Active Substance: MELATONIN
     Indication: INSOMNIA
     Route: 065
     Dates: start: 20150512, end: 20150514
  11. CYCLOPHOSPHAMIDE. [Suspect]
     Active Substance: CYCLOPHOSPHAMIDE
     Indication: NON-HODGKIN^S LYMPHOMA
     Dosage: MOST RECENT DOSE WAS ADMINISTERED ON 10/JUL/2015
     Route: 065
     Dates: start: 20150410
  12. DOXORUBICIN [Suspect]
     Active Substance: DOXORUBICIN
     Indication: NON-HODGKIN^S LYMPHOMA
     Dosage: MOST RECENT DOSE WAS ADMINISTERED ON 10/JUL/2015
     Route: 065
     Dates: start: 20150410
  13. AMOXICILLIN/CLAVULANIC ACID [Concomitant]
     Active Substance: AMOXICILLIN\CLAVULANIC ACID
  14. VITAMIN B12 [Concomitant]
     Active Substance: CYANOCOBALAMIN
     Dosage: INDICATION: AS A SUPPLEMENT
     Route: 065
     Dates: start: 2010
  15. ONDANSETRON [Concomitant]
     Active Substance: ONDANSETRON
     Dosage: SELECT IF ONGOING=NO
     Route: 065
     Dates: start: 20150728, end: 20150731
  16. MAGIC MOUTHWASH (NYSTATIN/HYDROCORTISONE/BENADRYL) [Concomitant]
     Indication: MUCOSAL INFLAMMATION
     Route: 065
     Dates: start: 20150424, end: 20151005
  17. DALTEPARIN [Concomitant]
     Active Substance: DALTEPARIN
     Indication: THROMBOSIS PROPHYLAXIS
     Route: 065
     Dates: start: 20150510, end: 20150513
  18. ATORVASTATIN [Concomitant]
     Active Substance: ATORVASTATIN
  19. PREDNISONE. [Suspect]
     Active Substance: PREDNISONE
     Indication: NON-HODGKIN^S LYMPHOMA
     Dosage: MOST RECENT DOSE WAS ADMINISTERED ON 14/JUL/2015
     Route: 065
     Dates: start: 20150409
  20. ACETAMINOPHEN. [Concomitant]
     Active Substance: ACETAMINOPHEN
     Route: 065
     Dates: start: 20150510, end: 20150511
  21. FILGRASTIM [Concomitant]
     Active Substance: FILGRASTIM
     Route: 065
  22. ALLOPURINOL. [Concomitant]
     Active Substance: ALLOPURINOL
     Route: 065
  23. OBINUTUZUMAB [Suspect]
     Active Substance: OBINUTUZUMAB
     Indication: NON-HODGKIN^S LYMPHOMA
     Dosage: DATE OF MOST RECENT DOSE: 10/JUL/2015 (11.50)
     Route: 065
     Dates: start: 20150409
  24. GRAVOL [Concomitant]
     Active Substance: DIMENHYDRINATE
  25. METOCLOPRAMID [Concomitant]
     Active Substance: METOCLOPRAMIDE
  26. DIPHENHYDRAMINE. [Concomitant]
     Active Substance: DIPHENHYDRAMINE
     Dosage: AS PRE CHEMO PROPHYLAXIS
     Route: 065
     Dates: start: 20150409
  27. DEXAMETHASONE. [Concomitant]
     Active Substance: DEXAMETHASONE
     Dosage: AS PRE CHEMO PROPHYLAXIS
     Route: 065
     Dates: start: 20150410

REACTIONS (1)
  - Organising pneumonia [Recovered/Resolved]

NARRATIVE: CASE EVENT DATE: 20150723
